FAERS Safety Report 5279873-9 (Version None)
Quarter: 2007Q1

REPORT INFORMATION
  Report Type: 
  Country: None (occurrence: None)
  Receive Date: 20061215
  Receipt Date: 20051130
  Transmission Date: 20070707
  Serious: Yes (Other)
  Sender: FDA-Public Use
  Company Number: HQWYE816702DEC05

PATIENT
  Age: 52 Year
  Sex: Male
  Weight: 108.96 kg

DRUGS (4)
  1. EFFEXOR XR [Suspect]
     Indication: DEPRESSION
     Dosage: SEE IMAGE
     Route: 048
     Dates: start: 20050101, end: 20050101
  2. EFFEXOR XR [Suspect]
     Indication: DEPRESSION
     Dosage: SEE IMAGE
     Route: 048
     Dates: start: 20050101, end: 20051127
  3. EFFEXOR XR [Suspect]
     Indication: DEPRESSION
     Dosage: SEE IMAGE
     Route: 048
     Dates: start: 20051128
  4. PAXIL [Concomitant]

REACTIONS (5)
  - CRYING [None]
  - DRUG INEFFECTIVE [None]
  - MALAISE [None]
  - SLEEP DISORDER [None]
  - SUICIDAL IDEATION [None]
